FAERS Safety Report 9528512 (Version 1)
Quarter: 2013Q1

REPORT INFORMATION
  Report Type: Spontaneous
  Country: US (occurrence: None)
  Receive Date: 20130329
  Receipt Date: 20130329
  Transmission Date: 20140127
  Serious: No
  Sender: FDA-Public Use
  Company Number: 1000042873

PATIENT
  Age: 53 Year
  Sex: Female

DRUGS (4)
  1. ACIPHEX (RABEPRAZOLE SODIUM) RABEPRAZOLE SODIUM) [Concomitant]
  2. CYMBALATA (DULOXETINE HYDROCHLORIDE) (DULOXETINE HYDROCHLORIDE) [Concomitant]
  3. LEVOTHROXINE (LEVOTHYROXINE SODIUM) (LEVOTHROXINE SODIUM) [Concomitant]
  4. LINZE;L [Suspect]

REACTIONS (1)
  - Eye swelling [None]
